FAERS Safety Report 5730179-0 (Version None)
Quarter: 2008Q2

REPORT INFORMATION
  Report Type: 
  Country: None (occurrence: None)
  Receive Date: 20080502
  Receipt Date: 20080421
  Transmission Date: 20081010
  Serious: Yes (Hospitalization)
  Sender: FDA-Public Use
  Company Number: 8032166

PATIENT
  Sex: Female

DRUGS (4)
  1. KEPPRA [Suspect]
     Indication: EPILEPSY
     Dosage: 250 MG/ D
  2. KEPPRA [Suspect]
     Indication: EPILEPSY
     Dosage: 500 MG/D
  3. KEPPRA [Suspect]
     Indication: EPILEPSY
     Dosage: 1500 MG 2/D
  4. VALPROIC ACID [Concomitant]

REACTIONS (1)
  - CONVULSION [None]
